FAERS Safety Report 11936111 (Version 1)
Quarter: 2016Q1

REPORT INFORMATION
  Report Type: Report from Study
  Country: US (occurrence: US)
  Receive Date: 20160121
  Receipt Date: 20160121
  Transmission Date: 20160526
  Serious: No
  Sender: FDA-Public Use
  Company Number: US-AMGEN-USASL2015121062

PATIENT
  Age: 56 Year
  Sex: Female

DRUGS (1)
  1. KYPROLIS [Suspect]
     Active Substance: CARFILZOMIB
     Indication: PRODUCT USED FOR UNKNOWN INDICATION
     Dosage: 20 MG/M2, UNK
     Route: 065

REACTIONS (5)
  - Skin discolouration [Unknown]
  - Fatigue [Recovered/Resolved]
  - Rash generalised [Recovering/Resolving]
  - Neuropathy peripheral [Unknown]
  - Fungal skin infection [Unknown]
